FAERS Safety Report 21778246 (Version 15)
Quarter: 2024Q3

REPORT INFORMATION
  Report Type: Spontaneous
  Country: CA (occurrence: CA)
  Receive Date: 20221226
  Receipt Date: 20240928
  Transmission Date: 20241016
  Serious: Yes (Other)
  Sender: CELLTRION
  Company Number: CA-CELLTRION INC.-2021CA015039

PATIENT

DRUGS (51)
  1. INFLECTRA [Suspect]
     Active Substance: INFLIXIMAB-DYYB
     Indication: Crohn^s disease
     Dosage: 5 MG/KG, EVERY 0, 2, 6 THEN EVERY 8 WEEKS
     Route: 041
     Dates: start: 20170209, end: 20170321
  2. INFLECTRA [Suspect]
     Active Substance: INFLIXIMAB-DYYB
     Dosage: 600 MG (BOOSTER DOSE) 4 WEEKS
     Route: 041
     Dates: start: 20170321
  3. INFLECTRA [Suspect]
     Active Substance: INFLIXIMAB-DYYB
     Dosage: 600 MG (BOOSTER DOSE) 4 WEEKS
     Route: 041
     Dates: start: 20170420, end: 20170420
  4. INFLECTRA [Suspect]
     Active Substance: INFLIXIMAB-DYYB
     Dosage: 300 MG, EVERY 4 WEEKS
     Route: 041
     Dates: start: 20170516, end: 20170914
  5. INFLECTRA [Suspect]
     Active Substance: INFLIXIMAB-DYYB
     Dosage: 500 MG, EVERY 4 WEEKS
     Route: 041
     Dates: start: 20171004, end: 20180518
  6. INFLECTRA [Suspect]
     Active Substance: INFLIXIMAB-DYYB
     Dosage: 563 MG, EVERY 4 WEEKS
     Route: 041
     Dates: start: 20180614, end: 20190417
  7. INFLECTRA [Suspect]
     Active Substance: INFLIXIMAB-DYYB
     Dosage: 7.5 MG/KG, EVERY 4 WEEKS
     Route: 041
     Dates: start: 20190510
  8. INFLECTRA [Suspect]
     Active Substance: INFLIXIMAB-DYYB
     Dosage: 7500 UG/KG, EVERY 4 WEEKS
     Route: 041
     Dates: start: 20210621
  9. INFLECTRA [Suspect]
     Active Substance: INFLIXIMAB-DYYB
     Dosage: 7500 UG/KG, EVERY 4 WEEKS
     Route: 041
     Dates: start: 20210729
  10. INFLECTRA [Suspect]
     Active Substance: INFLIXIMAB-DYYB
     Dosage: 7500 UG/KG, EVERY 4 WEEKS
     Route: 041
     Dates: start: 20210923
  11. INFLECTRA [Suspect]
     Active Substance: INFLIXIMAB-DYYB
     Dosage: 7500 UG/KG, EVERY 4 WEEKS
     Route: 041
     Dates: start: 20211028
  12. INFLECTRA [Suspect]
     Active Substance: INFLIXIMAB-DYYB
     Dosage: 7500 UG/KG, EVERY 4 WEEKS
     Route: 041
     Dates: start: 20211202
  13. INFLECTRA [Suspect]
     Active Substance: INFLIXIMAB-DYYB
     Dosage: 7500 UG/KG, EVERY 4 WEEKS
     Route: 041
     Dates: start: 20220106
  14. INFLECTRA [Suspect]
     Active Substance: INFLIXIMAB-DYYB
     Dosage: 7500 UG/KG, EVERY 4 WEEKS
     Route: 041
     Dates: start: 20220106
  15. INFLECTRA [Suspect]
     Active Substance: INFLIXIMAB-DYYB
     Dosage: 7.5 MG/KG, EVERY 4 WEEKS
     Route: 041
     Dates: start: 20220210
  16. INFLECTRA [Suspect]
     Active Substance: INFLIXIMAB-DYYB
     Dosage: 7.5 MG/KG, EVERY 4 WEEKS
     Route: 042
     Dates: start: 20220210
  17. INFLECTRA [Suspect]
     Active Substance: INFLIXIMAB-DYYB
     Dosage: 7.5 MG/KG, EVERY 4 WEEKS
     Route: 042
     Dates: start: 20220317
  18. INFLECTRA [Suspect]
     Active Substance: INFLIXIMAB-DYYB
     Dosage: 7.5 MG/KG, EVERY 4 WEEKS
     Route: 042
     Dates: start: 20220418
  19. INFLECTRA [Suspect]
     Active Substance: INFLIXIMAB-DYYB
     Dosage: 7.5 MG/KG, EVERY 4 WEEKS
     Route: 042
     Dates: start: 20220524
  20. INFLECTRA [Suspect]
     Active Substance: INFLIXIMAB-DYYB
     Dosage: 7.5 MG/KG, EVERY 4 WEEKS
     Route: 042
     Dates: start: 20220705
  21. INFLECTRA [Suspect]
     Active Substance: INFLIXIMAB-DYYB
     Dosage: 7.5 MG/KG, EVERY 4 WEEKS
     Route: 042
     Dates: start: 20220809
  22. INFLECTRA [Suspect]
     Active Substance: INFLIXIMAB-DYYB
     Dosage: 7.5 MG/KG, EVERY 4 WEEKS
     Route: 042
     Dates: start: 20220914
  23. INFLECTRA [Suspect]
     Active Substance: INFLIXIMAB-DYYB
     Dosage: 7.5 MG/KG, EVERY 4 WEEKS
     Route: 041
     Dates: start: 20221019
  24. INFLECTRA [Suspect]
     Active Substance: INFLIXIMAB-DYYB
     Dosage: 7.5 MG/KG, EVERY 4 WEEKS
     Route: 041
     Dates: start: 20221123
  25. INFLECTRA [Suspect]
     Active Substance: INFLIXIMAB-DYYB
     Dosage: 7.5 MG/KG, AFTER 7 WEEKS AND 2 DAYS (PRESCRIBED EVERY 4 WEEKS)
     Route: 041
     Dates: start: 20230113
  26. INFLECTRA [Suspect]
     Active Substance: INFLIXIMAB-DYYB
     Dosage: 7.5 MG/KG, EVERY 4 WEEKS
     Route: 041
     Dates: start: 20230215
  27. INFLECTRA [Suspect]
     Active Substance: INFLIXIMAB-DYYB
     Dosage: 7.5 MG/KG, EVERY 4 WEEKS
     Route: 041
     Dates: start: 20230322
  28. INFLECTRA [Suspect]
     Active Substance: INFLIXIMAB-DYYB
     Dosage: 600 MG, EVERY 4 WEEKS (SUPPOSED TO RECEIVE 7.5 MG/KG, PATIENT SHOULD REQUIRE 607.5 MG DOSE)
     Route: 041
     Dates: start: 20230426
  29. INFLECTRA [Suspect]
     Active Substance: INFLIXIMAB-DYYB
     Dosage: 7.5 MG/KG, EVERY 4 WEEKS
     Route: 041
     Dates: start: 20230524
  30. INFLECTRA [Suspect]
     Active Substance: INFLIXIMAB-DYYB
     Dosage: 585 MG (7.5 MG/KG), 4 WEEKS
     Route: 041
     Dates: start: 20230622
  31. INFLECTRA [Suspect]
     Active Substance: INFLIXIMAB-DYYB
     Dosage: 585 MG, EVERY 5 WEEKS
     Route: 041
     Dates: start: 20230727
  32. INFLECTRA [Suspect]
     Active Substance: INFLIXIMAB-DYYB
     Dosage: 585 MG, 5 WEEKS AND 1 DAY
     Route: 041
     Dates: start: 20230901
  33. INFLECTRA [Suspect]
     Active Substance: INFLIXIMAB-DYYB
     Dosage: 7.5 MG/KG, EVERY 4 WEEKS
     Route: 041
     Dates: start: 20231006
  34. INFLECTRA [Suspect]
     Active Substance: INFLIXIMAB-DYYB
     Dosage: 7.5 MG/KG, EVERY 4 WEEKS
     Route: 041
     Dates: start: 20231006
  35. INFLECTRA [Suspect]
     Active Substance: INFLIXIMAB-DYYB
     Dosage: 7.5 MG/KG (578 MG), AFTER 5 WEEKS (PRESCRIBED EVERY 4 WEEKS)
     Route: 041
     Dates: start: 20231110
  36. INFLECTRA [Suspect]
     Active Substance: INFLIXIMAB-DYYB
     Dosage: 7.5 MG/KG, EVERY 4 WEEKS
     Route: 041
     Dates: start: 20240119
  37. INFLECTRA [Suspect]
     Active Substance: INFLIXIMAB-DYYB
     Dosage: 7.5 MG/KG, EVERY 4 WEEKS
     Route: 041
     Dates: start: 20240119
  38. INFLECTRA [Suspect]
     Active Substance: INFLIXIMAB-DYYB
     Dosage: 7.5 MG/KG (551.25 MG), EVERY 4 WEEKS
     Route: 041
     Dates: start: 20240216
  39. INFLECTRA [Suspect]
     Active Substance: INFLIXIMAB-DYYB
     Dosage: 7.5 MG/KG, EVERY 4 WEEKS
     Route: 041
     Dates: start: 20240710
  40. INFLECTRA [Suspect]
     Active Substance: INFLIXIMAB-DYYB
     Dosage: 547.5 MG (7.5 MG/KG), EVERY 4 WEEKS
     Route: 041
     Dates: start: 20240814
  41. INFLECTRA [Suspect]
     Active Substance: INFLIXIMAB-DYYB
     Dosage: 547.5 MG (7.5 MG/KG), EVERY 4 WEEKS
     Route: 041
     Dates: start: 20240918
  42. CALCIUM [Concomitant]
     Active Substance: CALCIUM
     Dosage: 1 DF
  43. HYDROMORPHONE [Concomitant]
     Active Substance: HYDROMORPHONE
     Dosage: 1 DF, DOSAGE INFORMATION NOT AVAILABLE
     Route: 065
     Dates: start: 20160116
  44. IMURAN [Concomitant]
     Active Substance: AZATHIOPRINE
     Dosage: 150 MG, FREQUENCY: UNKNOWN
     Route: 048
  45. PREDNISONE [Concomitant]
     Active Substance: PREDNISONE
     Dosage: UNK
  46. PREDNISONE [Concomitant]
     Active Substance: PREDNISONE
     Dosage: 1 DF
  47. TYLENOL [Concomitant]
     Active Substance: ACETAMINOPHEN
     Dosage: UNK
  48. TYLENOL [Concomitant]
     Active Substance: ACETAMINOPHEN
     Dosage: 1 DF
  49. VITAMIN B12 [Concomitant]
     Active Substance: CYANOCOBALAMIN
     Dosage: 1 DF, DOSAGE INFORMATION NOT AVAILABLE
     Route: 065
  50. CHOLECALCIFEROL [Concomitant]
     Active Substance: CHOLECALCIFEROL
     Dosage: UNK
  51. CHOLECALCIFEROL [Concomitant]
     Active Substance: CHOLECALCIFEROL
     Dosage: 1 DF

REACTIONS (23)
  - Anal stenosis [Unknown]
  - Condition aggravated [Recovered/Resolved]
  - Nausea [Unknown]
  - Abdominal distension [Recovered/Resolved]
  - Anal fistula [Recovered/Resolved]
  - Arthralgia [Recovered/Resolved]
  - Aphthous ulcer [Recovered/Resolved]
  - Mouth ulceration [Recovered/Resolved]
  - Dehydration [Unknown]
  - Nervousness [Unknown]
  - Red blood cell count decreased [Not Recovered/Not Resolved]
  - Haemoglobin decreased [Not Recovered/Not Resolved]
  - Haematocrit decreased [Not Recovered/Not Resolved]
  - Platelet count increased [Not Recovered/Not Resolved]
  - Proctalgia [Recovered/Resolved]
  - COVID-19 [Unknown]
  - Headache [Recovered/Resolved]
  - Malaise [Recovered/Resolved]
  - Pyrexia [Recovered/Resolved]
  - Off label use [Unknown]
  - Off label use [Unknown]
  - Intentional product use issue [Unknown]
  - Inappropriate schedule of product administration [Unknown]

NARRATIVE: CASE EVENT DATE: 20170321
